FAERS Safety Report 18627748 (Version 1)
Quarter: 2020Q4

REPORT INFORMATION
  Report Type: Spontaneous
  Country: US (occurrence: US)
  Receive Date: 20201216
  Receipt Date: 20201216
  Transmission Date: 20210114
  Serious: Yes (Disabling, Other)
  Sender: FDA-Public Use
  Company Number: None

PATIENT
  Age: 29 Year
  Sex: Male
  Weight: 78.75 kg

DRUGS (3)
  1. KRATOM [Concomitant]
     Active Substance: HERBALS\MITRAGYNINE
  2. DAYVIGO [Suspect]
     Active Substance: LEMBOREXANT
     Indication: INSOMNIA
     Dosage: ?          QUANTITY:10 CAPSULE(S);?
     Route: 048
     Dates: start: 20201215, end: 20201215
  3. NORCO 10/325 ACETAMINOPHEN [Concomitant]

REACTIONS (10)
  - Asthenopia [None]
  - Palpitations [None]
  - Headache [None]
  - Agitation [None]
  - Dizziness [None]
  - Fear [None]
  - Lethargy [None]
  - Restlessness [None]
  - Anxiety [None]
  - Discomfort [None]

NARRATIVE: CASE EVENT DATE: 20201215
